FAERS Safety Report 10090613 (Version 3)
Quarter: 2014Q2

REPORT INFORMATION
  Report Type: Report from Study
  Country: MX (occurrence: MX)
  Receive Date: 20140421
  Receipt Date: 20140527
  Transmission Date: 20141212
  Serious: Yes (Other)
  Sender: FDA-Public Use
  Company Number: PHHY2014MX048437

PATIENT
  Age: 64 Year
  Sex: Male

DRUGS (3)
  1. TRILEPTAL [Suspect]
     Indication: NEURALGIA
     Dosage: 600 MG, TID
  2. EUTIROX [Concomitant]
     Indication: THYROID DISORDER
     Dosage: 1 UKN, DAILY
  3. RIVOTRIL [Concomitant]
     Indication: ANXIETY
     Dosage: 0.25 UKN, TID

REACTIONS (2)
  - Brain oedema [Unknown]
  - Drug ineffective [Not Recovered/Not Resolved]
